FAERS Safety Report 13295024 (Version 1)
Quarter: 2017Q1

REPORT INFORMATION
  Report Type: Spontaneous
  Country: CH (occurrence: CH)
  Receive Date: 20170303
  Receipt Date: 20170303
  Transmission Date: 20170428
  Serious: Yes (Other)
  Sender: FDA-Public Use
  Company Number: CH-ASTRAZENECA-2017SE18822

PATIENT
  Age: 70 Year
  Sex: Female

DRUGS (7)
  1. PANTOPRAZOLE [Concomitant]
     Active Substance: PANTOPRAZOLE SODIUM
     Dates: start: 2015
  2. CLEXANE [Concomitant]
     Active Substance: ENOXAPARIN SODIUM
     Dates: start: 2015
  3. LOSARTAN. [Concomitant]
     Active Substance: LOSARTAN
     Dates: start: 2000
  4. METOCLOPRAMIDE. [Concomitant]
     Active Substance: METOCLOPRAMIDE
     Dates: start: 2016
  5. ASPIRIN. [Concomitant]
     Active Substance: ASPIRIN
     Dates: start: 2000
  6. CONCOR [Concomitant]
     Active Substance: BISOPROLOL FUMARATE
     Dates: start: 2000
  7. TAGRISSO [Suspect]
     Active Substance: OSIMERTINIB
     Indication: NON-SMALL CELL LUNG CANCER
     Route: 048
     Dates: start: 20161221, end: 20170213

REACTIONS (4)
  - Abdominal pain [Unknown]
  - Vomiting [Unknown]
  - Malignant neoplasm progression [Unknown]
  - Transaminases increased [Unknown]

NARRATIVE: CASE EVENT DATE: 20170220
